FAERS Safety Report 4799828-8 (Version None)
Quarter: 2005Q4

REPORT INFORMATION
  Report Type: 
  Country: None (occurrence: None)
  Receive Date: 20051013
  Receipt Date: 20051013
  Transmission Date: 20060501
  Serious: Yes (Other)
  Sender: FDA-Public Use
  Company Number: None

PATIENT
  Age: 70 Year
  Sex: Male

DRUGS (10)
  1. FLUCONAZOLE [Suspect]
     Dosage: 200 MG PER DAY
     Dates: start: 20050304, end: 20050324
  2. FLOMAX [Concomitant]
  3. RIFAMPIN [Concomitant]
  4. VANCOMYCIN [Concomitant]
  5. LINEZOID [Concomitant]
  6. ZOSYN [Concomitant]
  7. CEFTAZIDIME [Concomitant]
  8. LEVAQUIN [Concomitant]
  9. CYTARABINE [Concomitant]
  10. IDARUBICIAN [Concomitant]

REACTIONS (10)
  - ACUTE RESPIRATORY DISTRESS SYNDROME [None]
  - ALANINE AMINOTRANSFERASE INCREASED [None]
  - ASPARTATE AMINOTRANSFERASE INCREASED [None]
  - BLOOD ALKALINE PHOSPHATASE INCREASED [None]
  - BLOOD BILIRUBIN INCREASED [None]
  - ENTEROCOCCAL INFECTION [None]
  - INJURY [None]
  - JAUNDICE [None]
  - LIVER DISORDER [None]
  - SEPSIS [None]
